FAERS Safety Report 9699748 (Version 1)
Quarter: 2013Q4

REPORT INFORMATION
  Report Type: Spontaneous
  Country: US (occurrence: US)
  Receive Date: 20131120
  Receipt Date: 20131120
  Transmission Date: 20140711
  Serious: No
  Sender: FDA-Public Use
  Company Number: US-TEVA-373003USA

PATIENT
  Age: 31 Year
  Sex: Female
  Weight: 66.28 kg

DRUGS (4)
  1. PARAGARD 380A [Suspect]
     Indication: CONTRACEPTION
     Route: 015
     Dates: start: 20121009, end: 20121128
  2. VITAMINS [Concomitant]
  3. IRON [Concomitant]
  4. LEXAPRO [Concomitant]

REACTIONS (1)
  - Device expulsion [Recovered/Resolved]
